FAERS Safety Report 15641235 (Version 1)
Quarter: 2018Q4

REPORT INFORMATION
  Report Type: Spontaneous
  Country: US (occurrence: US)
  Receive Date: 20181120
  Receipt Date: 20181120
  Transmission Date: 20190205
  Serious: No
  Sender: FDA-Public Use
  Company Number: US-BAUSCH-BL-2018-030615

PATIENT
  Age: 59 Year
  Sex: Female
  Weight: 111.23 kg

DRUGS (6)
  1. DILTIAZEM HCL ER CAPSULES [Suspect]
     Active Substance: DILTIAZEM HYDROCHLORIDE
     Dosage: AGAIN WENT BACK TO OLD BOTTLE
     Route: 048
     Dates: start: 2018
  2. DILTIAZEM HCL ER CAPSULES [Suspect]
     Active Substance: DILTIAZEM HYDROCHLORIDE
     Dosage: TOOK A CAPSULE FROM THE NEW BOTTLE
     Route: 048
     Dates: start: 2018, end: 2018
  3. DILTIAZEM HCL ER CAPSULES [Suspect]
     Active Substance: DILTIAZEM HYDROCHLORIDE
     Dosage: TOOK A CAPSULE FROM THE NEW BOTTLE AGAIN
     Route: 048
     Dates: start: 20181026, end: 20181026
  4. PROVENTIL [Concomitant]
     Active Substance: ALBUTEROL
     Indication: PRODUCT USED FOR UNKNOWN INDICATION
     Route: 048
  5. DILTIAZEM HCL ER CAPSULES [Suspect]
     Active Substance: DILTIAZEM HYDROCHLORIDE
     Indication: HYPERTENSION
     Dosage: STARTED BEGINNING OF 2017
     Route: 048
     Dates: start: 2017
  6. DILTIAZEM HCL ER CAPSULES [Suspect]
     Active Substance: DILTIAZEM HYDROCHLORIDE
     Dosage: SWITCHED BACK TO TAKING CAPSULES FROM THE OLD BOTTLE
     Route: 048
     Dates: start: 2018, end: 2018

REACTIONS (2)
  - Product quality issue [Not Recovered/Not Resolved]
  - Dizziness [Recovered/Resolved]

NARRATIVE: CASE EVENT DATE: 2018
